FAERS Safety Report 7315627-7 (Version None)
Quarter: 2011Q1

REPORT INFORMATION
  Report Type: 
  Country: None (occurrence: None)
  Receive Date: 20110215
  Receipt Date: 20110209
  Transmission Date: 20110831
  Serious: Yes (Disabling)
  Sender: FDA-Public Use
  Company Number: OSCN-NO-1005S-0132

PATIENT
  Age: 41 Year
  Sex: Female

DRUGS (33)
  1. WARFARIN (MAREVAN) [Concomitant]
  2. ATORVASTATIN [Concomitant]
  3. PLAVIX [Concomitant]
  4. CIPROFLOXACIN [Concomitant]
  5. VANCOMYCIN (VANCOMYCIN ^HOSPIRA^) [Concomitant]
  6. TRANDATE [Concomitant]
  7. GLYCERYL TRINITRATE (NITROLINGUAL) [Concomitant]
  8. CODEINE, COMBINATIONS EXCL. PSYCHOLEPTICS (FORTAMOL) [Concomitant]
  9. ATORVASTATIN [Concomitant]
  10. LANTHANUM CARBONATE (FOSRENOL) [Concomitant]
  11. ARANESP [Concomitant]
  12. CINACALCET (MIMPARA) [Concomitant]
  13. CODEINE [Concomitant]
  14. VITAMIN B COMPLEX, PLAIN (B-COMBIN ST?RK) [Concomitant]
  15. PARICALCITOL (ZEMPLAR) [Concomitant]
  16. VANCOMYCIN (VANCOMYCIN ^ALPHARMA^) [Concomitant]
  17. VITAMIN C (VITAMIN C) [Concomitant]
  18. MAGNEVIST [Suspect]
     Indication: PRODUCT USED FOR UNKNOWN INDICATION
     Dosage: SINGLE DOSE, I.V.
     Route: 042
     Dates: start: 20071001, end: 20071001
  19. GADOVIST [Suspect]
     Indication: PRODUCT USED FOR UNKNOWN INDICATION
     Dosage: SINGLE DOSE, I.V.
     Route: 042
     Dates: start: 20090901, end: 20090901
  20. RENAGEL [Concomitant]
  21. RAMIPRIL [Concomitant]
  22. INNOHEP [Concomitant]
  23. SACCHARATED IRON OXIDE (VENOFER) [Concomitant]
  24. METOPROLOL (SELO-ZOK) [Concomitant]
  25. MELATONIN (CIRCADIN) [Concomitant]
  26. FOLIC ACID [Concomitant]
  27. PARACETAMOL (PINEX) [Concomitant]
  28. METOCLOPRAMIDE (PRIMPERAN) [Concomitant]
  29. KETOBEMIDONE (KETOGAN) [Concomitant]
  30. METOCLOPRAMIDE (EMPERAL) [Concomitant]
  31. TRAMADOL (TRADOLAN) [Concomitant]
  32. OMNISCAN [Suspect]
     Indication: TRANSPLANT EVALUATION
     Dosage: SINGLE DOSE, I.V.
     Route: 042
     Dates: start: 20060313, end: 20060313
  33. STOLPIDEM (STILNOCT) [Concomitant]

REACTIONS (5)
  - BALANCE DISORDER [None]
  - SPIDER VEIN [None]
  - NEPHROGENIC SYSTEMIC FIBROSIS [None]
  - OEDEMA PERIPHERAL [None]
  - SKIN DISCOLOURATION [None]
